FAERS Safety Report 6208622-2 (Version None)
Quarter: 2009Q2

REPORT INFORMATION
  Report Type: 
  Country: None (occurrence: None)
  Receive Date: 20090529
  Receipt Date: 20090520
  Transmission Date: 20091009
  Serious: Yes (Other)
  Sender: FDA-Public Use
  Company Number: PS-JNJFOC-20090505481

PATIENT
  Sex: Female

DRUGS (2)
  1. TYLENOL (CAPLET) [Suspect]
  2. TYLENOL (CAPLET) [Suspect]
     Indication: DRUG USE FOR UNKNOWN INDICATION

REACTIONS (6)
  - ABDOMINAL PAIN UPPER [None]
  - DISTURBANCE IN ATTENTION [None]
  - FATIGUE [None]
  - INTENTIONAL OVERDOSE [None]
  - MENSTRUAL DISORDER [None]
  - NERVOUSNESS [None]
